FAERS Safety Report 21188135 (Version 3)
Quarter: 2023Q1

REPORT INFORMATION
  Report Type: Report from Study
  Country: US (occurrence: US)
  Receive Date: 20220809
  Receipt Date: 20230105
  Transmission Date: 20230418
  Serious: Yes (Death, Hospitalization, Other)
  Sender: FDA-Public Use
  Company Number: US-BIOGEN-2022BI01146047

PATIENT
  Age: 68 Year
  Sex: Male

DRUGS (12)
  1. TYSABRI [Suspect]
     Active Substance: NATALIZUMAB
     Indication: Graft versus host disease
     Route: 050
  2. TYSABRI [Suspect]
     Active Substance: NATALIZUMAB
     Route: 050
     Dates: start: 20180502
  3. CARVEDILOL [Suspect]
     Active Substance: CARVEDILOL
     Indication: Product used for unknown indication
     Route: 050
  4. CARVEDILOL [Suspect]
     Active Substance: CARVEDILOL
     Dosage: REINTRODUCED AT A LOWER DOSE OF 3 .125 MG PO BID DAILY UPON DISCHARGE
     Route: 050
  5. TORSEMIDE [Suspect]
     Active Substance: TORSEMIDE
     Indication: Product used for unknown indication
     Route: 050
  6. METHYLPREDNISOLONE [Concomitant]
     Active Substance: METHYLPREDNISOLONE
     Indication: Product used for unknown indication
     Route: 050
     Dates: start: 20180430, end: 20180516
  7. PREDNISONE [Concomitant]
     Active Substance: PREDNISONE
     Indication: Product used for unknown indication
     Route: 050
     Dates: start: 20180517
  8. PREDNISONE [Concomitant]
     Active Substance: PREDNISONE
     Route: 050
  9. LEVOFLOXACIN [Concomitant]
     Active Substance: LEVOFLOXACIN
     Indication: Product used for unknown indication
     Route: 050
     Dates: start: 20180502
  10. BUDESONIDE [Concomitant]
     Active Substance: BUDESONIDE
     Indication: Product used for unknown indication
     Route: 050
  11. TRIAMCINOLONE [Concomitant]
     Active Substance: TRIAMCINOLONE
     Indication: Product used for unknown indication
     Route: 050
  12. CYCLOSPORINE [Concomitant]
     Active Substance: CYCLOSPORINE
     Indication: Product used for unknown indication
     Route: 050
     Dates: end: 20181210

REACTIONS (10)
  - Graft versus host disease [Fatal]
  - Orthostatic hypotension [Recovered/Resolved]
  - Lactic acidosis [Unknown]
  - Systemic inflammatory response syndrome [Unknown]
  - Dehydration [Unknown]
  - Ileus [Unknown]
  - Sepsis [Unknown]
  - Hypovolaemia [Unknown]
  - Acute kidney injury [Unknown]
  - Limb mass [Unknown]

NARRATIVE: CASE EVENT DATE: 20180614
